FAERS Safety Report 25102058 (Version 1)
Quarter: 2025Q1

REPORT INFORMATION
  Report Type: Spontaneous
  Country: US (occurrence: US)
  Receive Date: 20250320
  Receipt Date: 20250320
  Transmission Date: 20250409
  Serious: Yes (Other)
  Sender: EISAI
  Company Number: US-Eisai-EC-2025-185808

PATIENT
  Age: 75 Year

DRUGS (1)
  1. LEQEMBI [Suspect]
     Active Substance: LECANEMAB-IRMB
     Indication: Product used for unknown indication

REACTIONS (1)
  - Squamous cell carcinoma of the oral cavity [Unknown]

NARRATIVE: CASE EVENT DATE: 20250101
